FAERS Safety Report 17016262 (Version 1)
Quarter: 2019Q4

REPORT INFORMATION
  Report Type: Spontaneous
  Country: US (occurrence: US)
  Receive Date: 20191003
  Receipt Date: 20191003
  Transmission Date: 20200122
  Serious: No
  Sender: FDA-Public Use
  Company Number: None

PATIENT
  Age: 71 Year
  Sex: Female
  Weight: 56.7 kg

DRUGS (4)
  1. LOSARTAN POTASSIUM. [Concomitant]
     Active Substance: LOSARTAN POTASSIUM
  2. MAVYRET [Suspect]
     Active Substance: GLECAPREVIR\PIBRENTASVIR
     Indication: HEPATITIS C
     Dosage: ?          QUANTITY:100-40MG;OTHER FREQUENCY:3 TABS DAILY W/FOO;?
     Route: 048
     Dates: start: 20190721, end: 20190915
  3. CLIMARA TRANSDERMAL PATCH [Concomitant]
  4. EPIDIO FORTE TOPICAL GEL [Concomitant]

REACTIONS (4)
  - Alopecia [None]
  - Fatigue [None]
  - Lethargy [None]
  - Abnormal dreams [None]
